FAERS Safety Report 5889764-8 (Version None)
Quarter: 2008Q3

REPORT INFORMATION
  Report Type: 
  Country: None (occurrence: None)
  Receive Date: 20080919
  Receipt Date: 20080908
  Transmission Date: 20090109
  Serious: Yes (Disabling, Other)
  Sender: FDA-Public Use
  Company Number: DK-ELI_LILLY_AND_COMPANY-DK200808002392

PATIENT
  Sex: Female
  Weight: 57 kg

DRUGS (4)
  1. ZYPREXA [Suspect]
     Indication: DEPRESSION
     Dosage: 5 MG, DAILY (1/D)
     Route: 048
     Dates: start: 20070701
  2. LYRICA [Concomitant]
     Indication: ANXIETY
     Dosage: 125 MG, 3/D
     Route: 048
     Dates: start: 20070801
  3. CIPRALEX [Concomitant]
     Indication: ANXIETY
     Dosage: 25 MG, DAILY (1/D)
     Route: 048
     Dates: start: 20070701
  4. TRUXAL [Concomitant]
     Indication: STRESS
     Dosage: 45 MG, 2/D
     Route: 048
     Dates: start: 20070518, end: 20080706

REACTIONS (2)
  - TEETH BRITTLE [None]
  - TOOTH LOSS [None]
